FAERS Safety Report 24096559 (Version 1)
Quarter: 2024Q3

REPORT INFORMATION
  Report Type: Spontaneous
  Country: SE (occurrence: SE)
  Receive Date: 20240716
  Receipt Date: 20240716
  Transmission Date: 20241017
  Serious: Yes (Other)
  Sender: MYLAN
  Company Number: SE-MYLANLABS-2024M1065245

PATIENT
  Age: 53 Year
  Sex: Female

DRUGS (1)
  1. LIDOCAINE [Suspect]
     Active Substance: LIDOCAINE
     Indication: Tooth extraction
     Dosage: UNK
     Route: 065
     Dates: end: 20230110

REACTIONS (1)
  - Nerve injury [Unknown]

NARRATIVE: CASE EVENT DATE: 20230112
